FAERS Safety Report 4869296-6 (Version None)
Quarter: 2005Q4

REPORT INFORMATION
  Report Type: 
  Country: None (occurrence: None)
  Receive Date: 20051230
  Receipt Date: 20051227
  Transmission Date: 20060501
  Serious: Yes (Death)
  Sender: FDA-Public Use
  Company Number: PHBS2005JP19054

PATIENT

DRUGS (2)
  1. PREDONINE [Suspect]
     Indication: NEPHROTIC SYNDROME
     Dosage: 40 MG/DAY
     Route: 048
  2. NEORAL [Suspect]
     Indication: NEPHROTIC SYNDROME
     Dosage: 150 MG/DAY
     Route: 048

REACTIONS (1)
  - PNEUMOCYSTIS JIROVECI PNEUMONIA [None]
